FAERS Safety Report 6168082-7 (Version None)
Quarter: 2009Q2

REPORT INFORMATION
  Report Type: 
  Country: None (occurrence: None)
  Receive Date: 20090427
  Receipt Date: 20090418
  Transmission Date: 20091009
  Serious: Yes (Other)
  Sender: FDA-Public Use
  Company Number: GB-BAYER-200918932GPV

PATIENT
  Age: 55 Year
  Sex: Male

DRUGS (14)
  1. FLUDARABINE PHOSPHATE [Suspect]
     Indication: MANTLE CELL LYMPHOMA
     Route: 048
  2. FLUDARABINE PHOSPHATE [Suspect]
     Route: 048
  3. FLUDARABINE PHOSPHATE [Suspect]
     Route: 048
  4. FLUDARABINE PHOSPHATE [Suspect]
     Route: 048
  5. CYCLOPHOSPHAMIDE [Suspect]
     Indication: MANTLE CELL LYMPHOMA
     Route: 048
  6. CYCLOPHOSPHAMIDE [Suspect]
     Route: 048
  7. CYCLOPHOSPHAMIDE [Suspect]
     Route: 048
  8. CYCLOPHOSPHAMIDE [Suspect]
     Route: 048
  9. RITUXIMAB [Suspect]
     Indication: MANTLE CELL LYMPHOMA
  10. RITUXIMAB [Suspect]
  11. RITUXIMAB [Suspect]
  12. RITUXIMAB [Suspect]
  13. CYCLOPHOSPHAMIDE [Concomitant]
     Indication: HAEMATOPOIETIC STEM CELL MOBILISATION
  14. NEUPOGEN [Concomitant]
     Indication: HAEMATOPOIETIC STEM CELL MOBILISATION

REACTIONS (1)
  - BLOOD STEM CELL HARVEST FAILURE [None]
